FAERS Safety Report 9277284 (Version 5)
Quarter: 2014Q1

REPORT INFORMATION
  Report Type: Report from Study
  Country: CA (occurrence: CA)
  Receive Date: 20130508
  Receipt Date: 20140120
  Transmission Date: 20141002
  Serious: Yes (Other)
  Sender: FDA-Public Use
  Company Number: CA-ROCHE-1222177

PATIENT
  Age: 84 Year
  Sex: Female
  Weight: 67 kg

DRUGS (14)
  1. ACTEMRA [Suspect]
     Indication: RHEUMATOID ARTHRITIS
     Route: 042
     Dates: start: 20130305, end: 20130821
  2. WARFARIN [Concomitant]
  3. RAMIPRIL [Concomitant]
     Route: 065
  4. AMITRIPTYLINE [Concomitant]
     Dosage: QD
     Route: 048
  5. HYDROMORPHONE [Concomitant]
     Route: 048
     Dates: start: 20121123
  6. ELTROXIN [Concomitant]
     Route: 048
  7. FUROSEMIDE [Concomitant]
     Route: 048
     Dates: start: 20121123
  8. DIGOXIN [Concomitant]
     Route: 048
  9. PREDNISONE [Concomitant]
     Dosage: QD?4 TABLETS DAILY FOR  FOUR DAYS AND THEN 3 TABLETS FOR 4 DAYS
     Route: 048
  10. PREDNISONE [Concomitant]
     Route: 065
     Dates: start: 20121205
  11. SALBUTAMOL SULPHATE [Concomitant]
     Route: 065
  12. RIVAROXABAN [Concomitant]
     Route: 048
  13. LEVOTHYROXIN NATRIUM [Concomitant]
     Dosage: HALF TABLET A DAY
     Route: 048
  14. DILTIAZEM HCL [Concomitant]
     Route: 065

REACTIONS (6)
  - Keratitis [Recovered/Resolved]
  - Iritis [Recovered/Resolved]
  - Hand fracture [Unknown]
  - Fall [Unknown]
  - Fracture [Recovering/Resolving]
  - Drug ineffective [Unknown]
